FAERS Safety Report 16827396 (Version 1)
Quarter: 2019Q4

REPORT INFORMATION
  Report Type: Spontaneous
  Country: US (occurrence: US)
  Receive Date: 20190919
  Receipt Date: 20190919
  Transmission Date: 20200122
  Serious: No
  Sender: FDA-Public Use
  Company Number: None

PATIENT
  Age: 19 Year
  Sex: Female
  Weight: 60.75 kg

DRUGS (1)
  1. SUBOXONE [Suspect]
     Active Substance: BUPRENORPHINE HYDROCHLORIDE\NALOXONE HYDROCHLORIDE

REACTIONS (9)
  - Suppressed lactation [None]
  - Drug hypersensitivity [None]
  - Chills [None]
  - Chromaturia [None]
  - Arthralgia [None]
  - Decreased appetite [None]
  - Headache [None]
  - Hot flush [None]
  - Dizziness [None]
